FAERS Safety Report 12280727 (Version 1)
Quarter: 2016Q2

REPORT INFORMATION
  Report Type: Spontaneous
  Country: GB (occurrence: GB)
  Receive Date: 20160419
  Receipt Date: 20160419
  Transmission Date: 20160815
  Serious: Yes (Other)
  Sender: FDA-Public Use
  Company Number: GB-AUROBINDO-AUR-APL-2016-04748

PATIENT
  Age: 25 Year
  Sex: Female

DRUGS (2)
  1. VORICONAZOLE. [Suspect]
     Active Substance: VORICONAZOLE
     Indication: PRODUCT USED FOR UNKNOWN INDICATION
     Route: 048
  2. FLUCONAZOLE 150MG [Suspect]
     Active Substance: FLUCONAZOLE
     Indication: PRODUCT USED FOR UNKNOWN INDICATION
     Dosage: 150 MG, 72 H X 3 FOLLOWED BY A WEEKLY DOSE FOR THREE MONTHS
     Route: 048

REACTIONS (3)
  - Condition aggravated [Recovered/Resolved]
  - Vulvovaginal pain [Recovered/Resolved]
  - Drug resistance [Recovered/Resolved]
